FAERS Safety Report 7353093-6 (Version None)
Quarter: 2011Q1

REPORT INFORMATION
  Report Type: 
  Country: None (occurrence: None)
  Receive Date: 20110315
  Receipt Date: 20110310
  Transmission Date: 20110831
  Serious: Yes (Other)
  Sender: FDA-Public Use
  Company Number: AU-ROCHE-764542

PATIENT
  Sex: Female

DRUGS (3)
  1. IRINOTECAN [Concomitant]
  2. XELODA [Suspect]
     Dosage: THERAPY WITH REDUCED DOSE.
     Route: 065
  3. XELODA [Suspect]
     Route: 065

REACTIONS (2)
  - DISEASE PROGRESSION [None]
  - TOXICITY TO VARIOUS AGENTS [None]
